FAERS Safety Report 17293504 (Version 1)
Quarter: 2020Q1

REPORT INFORMATION
  Report Type: Spontaneous
  Country: JP (occurrence: JP)
  Receive Date: 20200121
  Receipt Date: 20200121
  Transmission Date: 20200409
  Serious: Yes (Other)
  Sender: FDA-Public Use
  Company Number: NVSC2020JP011943

PATIENT
  Age: 71 Year
  Sex: Male

DRUGS (2)
  1. PEMETREXED. [Suspect]
     Active Substance: PEMETREXED
     Indication: LUNG ADENOCARCINOMA
     Dosage: 6 MG/ML/MIN, 6 CYCLES
     Route: 065
  2. CARBOPLATIN. [Suspect]
     Active Substance: CARBOPLATIN
     Indication: LUNG ADENOCARCINOMA
     Dosage: 6 MG/ML/MIN, 4 CYCLES
     Route: 065

REACTIONS (3)
  - Product use in unapproved indication [Unknown]
  - Lung adenocarcinoma [Unknown]
  - Malignant neoplasm progression [Unknown]
